FAERS Safety Report 9796212 (Version 1)
Quarter: 2014Q1

REPORT INFORMATION
  Report Type: Spontaneous
  Country: CL (occurrence: CL)
  Receive Date: 20140103
  Receipt Date: 20140103
  Transmission Date: 20141002
  Serious: Yes (Other)
  Sender: FDA-Public Use
  Company Number: CL-PFIZER INC-2013374604

PATIENT
  Age: 52 Year
  Sex: Female

DRUGS (2)
  1. XALATAN [Suspect]
     Indication: GLAUCOMA
     Dosage: 1 GTT, 1X/DAY (1 DROP IN EACH EYE 1X/DAY AT NIGHT)
     Route: 047
     Dates: start: 2004, end: 201305
  2. METFORMIN [Concomitant]
     Dosage: UNK
     Dates: start: 2006

REACTIONS (2)
  - Diabetes mellitus [Not Recovered/Not Resolved]
  - Intraocular pressure increased [Not Recovered/Not Resolved]
